FAERS Safety Report 7297728-5 (Version None)
Quarter: 2011Q1

REPORT INFORMATION
  Report Type: 
  Country: None (occurrence: None)
  Receive Date: 20110217
  Receipt Date: 20110211
  Transmission Date: 20110831
  Serious: Yes (Death)
  Sender: FDA-Public Use
  Company Number: RS-TEVA-XM22-04-267045GER

PATIENT
  Sex: Male
  Weight: 67.5 kg

DRUGS (12)
  1. XM22 PEG-FILGRASTIM [Suspect]
     Dosage: BLINDED XM22 6 MG OR PLACEBO
     Route: 041
     Dates: start: 20110113, end: 20110113
  2. XM22 PEG-FILGRASTIM [Suspect]
     Indication: COLONY STIMULATING FACTOR PROPHYLAXIS
     Dosage: BLINDED XM22 6 MG OR PLACEBO
     Route: 041
     Dates: start: 20101126, end: 20101126
  3. XM22 PEG-FILGRASTIM [Suspect]
     Dosage: BLINDED XM22 6 MG OR PLACEBO
     Route: 041
     Dates: start: 20101221, end: 20101221
  4. CISPLATIN [Suspect]
     Route: 041
     Dates: start: 20110113, end: 20110113
  5. ETOPOSIDE [Suspect]
     Route: 041
     Dates: start: 20101221, end: 20101223
  6. CISPLATIN [Suspect]
     Indication: NON-SMALL CELL LUNG CANCER
     Route: 041
     Dates: start: 20101126, end: 20101126
  7. BENSEDIN (DIAZEPAM) [Concomitant]
     Indication: PAIN
     Route: 048
     Dates: start: 20101124, end: 20110202
  8. ETOPOSIDE [Suspect]
     Route: 041
     Dates: start: 20110113, end: 20110115
  9. TRODON (TRAMADOL) [Concomitant]
     Indication: PAIN
     Route: 048
     Dates: start: 20101124, end: 20110112
  10. CISPLATIN [Suspect]
     Route: 041
     Dates: start: 20101221, end: 20101221
  11. ETOPOSIDE [Suspect]
     Indication: NON-SMALL CELL LUNG CANCER
     Route: 041
     Dates: start: 20101126, end: 20101128
  12. TRODON (TRAMADOL) [Concomitant]
     Route: 048
     Dates: start: 20110113, end: 20110202

REACTIONS (1)
  - CEREBROVASCULAR ACCIDENT [None]
